FAERS Safety Report 13995827 (Version 4)
Quarter: 2022Q3

REPORT INFORMATION
  Report Type: Report from Study
  Country: PL (occurrence: PL)
  Receive Date: 20170921
  Receipt Date: 20220929
  Transmission Date: 20221027
  Serious: Yes (Death, Hospitalization, Other)
  Sender: FDA-Public Use
  Company Number: PHHY2017PL045710

PATIENT
  Age: 5 Year
  Sex: Female
  Weight: 14 kg

DRUGS (2)
  1. GLIVEC [Suspect]
     Active Substance: IMATINIB MESYLATE
     Indication: Acute lymphocytic leukaemia
     Dosage: 300 MG, QD
     Route: 048
     Dates: start: 20160817, end: 20160923
  2. IMATINIB MESYLATE [Suspect]
     Active Substance: IMATINIB MESYLATE
     Indication: Acute lymphocytic leukaemia
     Dosage: 200 MG
     Route: 048

REACTIONS (28)
  - Cardiac arrest [Fatal]
  - Multiple organ dysfunction syndrome [Fatal]
  - Acute respiratory failure [Fatal]
  - Pneumonia [Fatal]
  - Acute lymphocytic leukaemia [Fatal]
  - Adenovirus infection [Unknown]
  - Cytomegalovirus infection [Unknown]
  - Pneumonitis [Unknown]
  - Emphysematous cystitis [Unknown]
  - Pulmonary interstitial emphysema syndrome [Unknown]
  - Pyrexia [Unknown]
  - Pneumomediastinum [Unknown]
  - Subcutaneous emphysema [Unknown]
  - Oxygen saturation decreased [Unknown]
  - Viral infection [Unknown]
  - Mouth haemorrhage [Unknown]
  - Hypovolaemia [Unknown]
  - Sepsis [Unknown]
  - Haematuria [Unknown]
  - Red blood cell count decreased [Unknown]
  - Hepatic enzyme abnormal [Unknown]
  - Haemoglobin decreased [Unknown]
  - Gastric haemorrhage [Unknown]
  - Thrombocytopenia [Unknown]
  - Leukopenia [Unknown]
  - Bradycardia [Unknown]
  - Blood glucose increased [Unknown]
  - Pneumonia fungal [Unknown]

NARRATIVE: CASE EVENT DATE: 20160917
